FAERS Safety Report 6402763-2 (Version None)
Quarter: 2009Q4

REPORT INFORMATION
  Report Type: 
  Country: None (occurrence: None)
  Receive Date: 20091016
  Receipt Date: 20091008
  Transmission Date: 20100525
  Serious: Yes (Other)
  Sender: FDA-Public Use
  Company Number: ES-RANBAXY-2009RR-24881

PATIENT
  Age: 16 Year
  Sex: Male

DRUGS (4)
  1. ISOTRETINOIN [Suspect]
     Indication: ACNE
     Dosage: UNK
     Route: 048
     Dates: start: 20031101
  2. OMEPRAZOLE [Concomitant]
     Dosage: 20 MG, BID
  3. AMOXICILLIN [Concomitant]
     Dosage: 1 G, BID
  4. CLARITHROMYCIN [Concomitant]
     Dosage: 500 MG, BID

REACTIONS (1)
  - HENOCH-SCHONLEIN PURPURA [None]
